FAERS Safety Report 7754235-0 (Version None)
Quarter: 2011Q3

REPORT INFORMATION
  Report Type: 
  Country: None (occurrence: None)
  Receive Date: 20110915
  Receipt Date: 20110831
  Transmission Date: 20111222
  Serious: Yes (Other)
  Sender: FDA-Public Use
  Company Number: JP-UCBSA-041164

PATIENT
  Age: 77 Year
  Sex: Female

DRUGS (2)
  1. ALPROSTADIL [Suspect]
     Indication: HYPOTENSIVE ANAESTHESIA PROCEDURE
     Dosage: DAILY DOSE:500 MCG ; DISSOLVED IN 50 ML OF PHYSIOLOGICAL SALINE AT A RATE OF 0.15 MCG/KG/MIN
     Route: 041
     Dates: start: 20110830, end: 20110830
  2. SEVOFLURANE [Concomitant]
     Dates: start: 20110830, end: 20110830

REACTIONS (1)
  - OXYGEN SATURATION DECREASED [None]
